FAERS Safety Report 11062730 (Version 1)
Quarter: 2015Q2

REPORT INFORMATION
  Report Type: Spontaneous
  Country: US (occurrence: US)
  Receive Date: 20150424
  Receipt Date: 20150424
  Transmission Date: 20150821
  Serious: Yes (Other)
  Sender: FDA-Public Use
  Company Number: US-PFIZER INC-2015138368

PATIENT
  Age: 65 Year
  Sex: Female
  Weight: 96 kg

DRUGS (1)
  1. XELJANZ [Suspect]
     Active Substance: TOFACITINIB CITRATE
     Indication: RHEUMATOID ARTHRITIS
     Dosage: 40 MG, 2X/DAY, ONE IN THE MORNING AND ONE AT THE NIGHT
     Dates: start: 2013

REACTIONS (5)
  - Arthropathy [Unknown]
  - Pain [Unknown]
  - Condition aggravated [Unknown]
  - Drug ineffective [Unknown]
  - Rheumatoid arthritis [Unknown]

NARRATIVE: CASE EVENT DATE: 2015
